FAERS Safety Report 25771189 (Version 1)
Quarter: 2025Q3

REPORT INFORMATION
  Report Type: Spontaneous
  Country: GB (occurrence: GB)
  Receive Date: 20250908
  Receipt Date: 20250908
  Transmission Date: 20251021
  Serious: Yes (Other)
  Sender: ALEXION PHARMACEUTICALS
  Company Number: None

PATIENT
  Age: 63 Year
  Sex: Female

DRUGS (8)
  1. IMFINZI [Suspect]
     Active Substance: DURVALUMAB
     Indication: Adverse drug reaction
     Route: 065
  2. APREPITANT [Concomitant]
     Active Substance: APREPITANT
  3. DEXAMETHASONE [Concomitant]
     Active Substance: DEXAMETHASONE
  4. ONDANSETRON [Concomitant]
     Active Substance: ONDANSETRON
  5. GEMCITABINE [Concomitant]
     Active Substance: GEMCITABINE
  6. CISPLATIN [Concomitant]
     Active Substance: CISPLATIN
  7. MANNITOL [Concomitant]
     Active Substance: MANNITOL
  8. SODIUM CHLORIDE [Concomitant]
     Active Substance: SODIUM CHLORIDE

REACTIONS (3)
  - Gastrooesophageal reflux disease [Unknown]
  - Fatigue [Unknown]
  - Tremor [Unknown]

NARRATIVE: CASE EVENT DATE: 20250829
